FAERS Safety Report 12423815 (Version 2)
Quarter: 2016Q2

REPORT INFORMATION
  Report Type: Spontaneous
  Country: JP (occurrence: JP)
  Receive Date: 20160601
  Receipt Date: 20160629
  Transmission Date: 20160815
  Serious: Yes (Hospitalization)
  Sender: FDA-Public Use
  Company Number: JP-SA-2016SA103386

PATIENT
  Age: 72 Year
  Sex: Male

DRUGS (2)
  1. BCG FOR IMMUNOTHERAPY [Suspect]
     Active Substance: BACILLUS CALMETTE-GUERIN ANTIGEN, UNSPECIFIED SUBSTRAIN
     Indication: BLADDER CANCER
     Route: 065
  2. IMMUNOBLADDER [Suspect]
     Active Substance: BACILLUS CALMETTE-GUERIN ANTIGEN, UNSPECIFIED SUBSTRAIN
     Indication: BLADDER CANCER
     Route: 065

REACTIONS (10)
  - Bone marrow granuloma [Unknown]
  - Hypoxia [Unknown]
  - Headache [Recovering/Resolving]
  - Interstitial lung disease [Recovered/Resolved]
  - Liver function test increased [Recovered/Resolved]
  - Disseminated Bacillus Calmette-Guerin infection [Unknown]
  - Granulomatous liver disease [Unknown]
  - Pyrexia [Recovering/Resolving]
  - Cough [Unknown]
  - Jaundice [Recovering/Resolving]
